FAERS Safety Report 21931656 (Version 2)
Quarter: 2023Q1

REPORT INFORMATION
  Report Type: Spontaneous
  Country: US (occurrence: US)
  Receive Date: 20230131
  Receipt Date: 20230321
  Transmission Date: 20230417
  Serious: Yes (Death, Other)
  Sender: FDA-Public Use
  Company Number: US-BTGSP-US-BTGSP-23-0011

PATIENT
  Age: 67 Year
  Sex: Male
  Weight: 135 kg

DRUGS (2)
  1. CROFAB [Suspect]
     Active Substance: CROTALIDAE POLYVALENT IMMUNE FAB (OVINE)
     Indication: Snake bite
     Dosage: 50 VIALS OVER 68.23 H (ABOUT 3 DAYS)
     Route: 065
  2. EPINEPHRINE [Concomitant]
     Active Substance: EPINEPHRINE
     Indication: Septic shock
     Dosage: UNK

REACTIONS (6)
  - Pneumonia aspiration [Fatal]
  - Drug effect less than expected [Fatal]
  - Acute kidney injury [Fatal]
  - Brain injury [Fatal]
  - Cerebral infarction [Fatal]
  - Nervous system disorder [Fatal]
